FAERS Safety Report 21435547 (Version 2)
Quarter: 2023Q1

REPORT INFORMATION
  Report Type: Report from Study
  Country: US (occurrence: US)
  Receive Date: 20221010
  Receipt Date: 20230207
  Transmission Date: 20230417
  Serious: No
  Sender: FDA-Public Use
  Company Number: US-ABBVIE-22K-163-4503289-00

PATIENT
  Age: 59 Year
  Sex: Female

DRUGS (6)
  1. HUMIRA [Suspect]
     Active Substance: ADALIMUMAB
     Indication: Product used for unknown indication
     Route: 058
  2. SKYRIZI [Suspect]
     Active Substance: RISANKIZUMAB-RZAA
     Indication: Psoriasis
     Dosage: WEEK 0
     Route: 058
     Dates: start: 202207, end: 202207
  3. SKYRIZI [Suspect]
     Active Substance: RISANKIZUMAB-RZAA
     Indication: Psoriatic arthropathy
     Dosage: WEEK 4
     Route: 058
     Dates: start: 202208, end: 202208
  4. SKYRIZI [Suspect]
     Active Substance: RISANKIZUMAB-RZAA
     Route: 058
     Dates: start: 202208
  5. OTEZLA [Concomitant]
     Active Substance: APREMILAST
     Indication: Product used for unknown indication
  6. CYCLOSPORINE [Suspect]
     Active Substance: CYCLOSPORINE
     Indication: Product used for unknown indication
     Route: 065

REACTIONS (12)
  - Loss of personal independence in daily activities [Unknown]
  - Wound [Unknown]
  - Wound secretion [Unknown]
  - Arthralgia [Unknown]
  - Adverse drug reaction [Unknown]
  - Pyrexia [Unknown]
  - Cough [Unknown]
  - Drainage [Unknown]
  - Psoriasis [Unknown]
  - Drug ineffective [Unknown]
  - Heart rate irregular [Unknown]
  - Gait disturbance [Unknown]

NARRATIVE: CASE EVENT DATE: 20220701
